FAERS Safety Report 7079445-X (Version None)
Quarter: 2010Q4

REPORT INFORMATION
  Report Type: 
  Country: None (occurrence: None)
  Receive Date: 20101102
  Receipt Date: 20101101
  Transmission Date: 20110411
  Serious: Yes (Other)
  Sender: FDA-Public Use
  Company Number: US-WYE-H18456810

PATIENT
  Sex: Female

DRUGS (1)
  1. PROTONIX [Suspect]
     Route: 048
     Dates: start: 20100101

REACTIONS (1)
  - PANCREATIC CARCINOMA METASTATIC [None]
